FAERS Safety Report 7959625-9 (Version None)
Quarter: 2011Q4

REPORT INFORMATION
  Report Type: 
  Country: None (occurrence: None)
  Receive Date: 20111201
  Receipt Date: 20111115
  Transmission Date: 20120403
  Serious: Yes (Death)
  Sender: FDA-Public Use
  Company Number: 2009-060

PATIENT
  Age: 53 Year
  Sex: Male

DRUGS (8)
  1. ZOCOR [Concomitant]
  2. COGENTIN [Concomitant]
  3. INVEGA [Concomitant]
  4. NIASPAN [Concomitant]
  5. FAZACLO ODT [Suspect]
     Indication: SCHIZOPHRENIA
     Dosage: 300 MG, QD, ORAL
     Route: 048
     Dates: start: 20081126, end: 20090329
  6. LEXAPRO [Concomitant]
  7. POTASSIUM CHLORIDE [Concomitant]
  8. LASIX [Concomitant]

REACTIONS (3)
  - MENTAL DISORDER [None]
  - ABNORMAL BEHAVIOUR [None]
  - MYOCARDIAL INFARCTION [None]
